FAERS Safety Report 4579763-0 (Version None)
Quarter: 2005Q1

REPORT INFORMATION
  Report Type: 
  Country: None (occurrence: None)
  Receive Date: 20050210
  Receipt Date: 20050201
  Transmission Date: 20050727
  Serious: Yes (Death, Other)
  Sender: FDA-Public Use
  Company Number: 2005-01-1098

PATIENT
  Age: 59 Year
  Sex: Male
  Weight: 85 kg

DRUGS (1)
  1. PEG-INTERFERON ALFA-2B INJECTABLE POWDER [Suspect]
     Indication: HEPATITIS C
     Dosage: 50 MCG; SUBCUTANEOUS
     Route: 058
     Dates: start: 20031001, end: 20041201

REACTIONS (6)
  - BRONCHIECTASIS [None]
  - DYSPNOEA [None]
  - INTERSTITIAL LUNG DISEASE [None]
  - MYOCARDIAL INFARCTION [None]
  - PULMONARY FIBROSIS [None]
  - SARCOIDOSIS [None]
